FAERS Safety Report 13907702 (Version 1)
Quarter: 2017Q3

REPORT INFORMATION
  Report Type: Spontaneous
  Country: US (occurrence: US)
  Receive Date: 20170825
  Receipt Date: 20170825
  Transmission Date: 20171127
  Serious: No
  Sender: FDA-Public Use
  Company Number: US-ROCHE-1113589

PATIENT
  Sex: Female

DRUGS (6)
  1. NUTROPIN [Suspect]
     Active Substance: SOMATROPIN
     Route: 065
  2. NUTROPIN [Suspect]
     Active Substance: SOMATROPIN
     Route: 065
  3. NUTROPIN [Suspect]
     Active Substance: SOMATROPIN
     Route: 065
  4. NUTROPIN [Suspect]
     Active Substance: SOMATROPIN
     Indication: PRADER-WILLI SYNDROME
     Route: 065
  5. NUTROPIN [Suspect]
     Active Substance: SOMATROPIN
     Route: 065
  6. NUTROPIN [Suspect]
     Active Substance: SOMATROPIN
     Route: 065

REACTIONS (2)
  - Blood glucose increased [Unknown]
  - Overdose [Unknown]
